FAERS Safety Report 23603291 (Version 1)
Quarter: 2024Q1

REPORT INFORMATION
  Report Type: Spontaneous
  Country: US (occurrence: US)
  Receive Date: 20240307
  Receipt Date: 20240307
  Transmission Date: 20240409
  Serious: Yes (Death, Other)
  Sender: FDA-Public Use
  Company Number: US-BRISTOL-MYERS SQUIBB COMPANY-2024-035180

PATIENT
  Age: 57 Year
  Sex: Male
  Weight: 91.6 kg

DRUGS (16)
  1. POMALYST [Suspect]
     Active Substance: POMALIDOMIDE
     Indication: Plasma cell myeloma
     Route: 048
     Dates: start: 20231108, end: 20240301
  2. POMALYST [Suspect]
     Active Substance: POMALIDOMIDE
     Indication: Methylmalonic acidaemia
  3. DEXAMETHASONE [Concomitant]
     Active Substance: DEXAMETHASONE
  4. PANTOPRAZOLE [Concomitant]
     Active Substance: PANTOPRAZOLE
  5. CALCIUM\VITAMIN D [Concomitant]
     Active Substance: CALCIUM\VITAMIN D
  6. FOLIC ACID [Concomitant]
     Active Substance: FOLIC ACID
  7. ALLOPURINOL [Concomitant]
     Active Substance: ALLOPURINOL
  8. MOVANTIK [Concomitant]
     Active Substance: NALOXEGOL OXALATE
  9. VITAMIN B12 [Concomitant]
     Active Substance: CYANOCOBALAMIN
  10. CARAFATE [Concomitant]
     Active Substance: SUCRALFATE
  11. ACYCLOVIR [Concomitant]
     Active Substance: ACYCLOVIR
  12. MELATONIN [Concomitant]
     Active Substance: MELATONIN
  13. MIRTAZAPINE [Concomitant]
     Active Substance: MIRTAZAPINE
  14. MORPHINE [Concomitant]
     Active Substance: MORPHINE
     Dosage: ER
  15. OXYCODONE [Concomitant]
     Active Substance: OXYCODONE\OXYCODONE HYDROCHLORIDE
     Dosage: IR
  16. ASPIRIN [Concomitant]
     Active Substance: ASPIRIN

REACTIONS (1)
  - Death [Fatal]

NARRATIVE: CASE EVENT DATE: 20240301
